FAERS Safety Report 4622262-8 (Version None)
Quarter: 2005Q1

REPORT INFORMATION
  Report Type: 
  Country: None (occurrence: None)
  Receive Date: 20050328
  Receipt Date: 20050321
  Transmission Date: 20050727
  Serious: Yes (Hospitalization)
  Sender: FDA-Public Use
  Company Number: 206963

PATIENT
  Age: 35 Year
  Sex: Male

DRUGS (5)
  1. EFALIZUMAB (EFALIZUMAB) PWDR + SOLVENT, INJECTION SOLN, 125MG [Suspect]
     Indication: PSORIASIS
     Dosage: 1 MG/KG, 1/WEEK; SUBCUTANEOUS
     Route: 058
     Dates: start: 20031208, end: 20040223
  2. AMISULPRIDE [Concomitant]
  3. FLUOXETINE HCL [Concomitant]
  4. OXAZEPAM [Concomitant]
  5. CANNABIS [Concomitant]

REACTIONS (1)
  - PANCREATITIS [None]
